FAERS Safety Report 10214897 (Version 7)
Quarter: 2015Q1

REPORT INFORMATION
  Report Type: Report from Study
  Country: NL (occurrence: NL)
  Receive Date: 20140603
  Receipt Date: 20150303
  Transmission Date: 20150720
  Serious: Yes (Other)
  Sender: FDA-Public Use
  Company Number: NL-BAXTER-2014BAX027043

PATIENT
  Age: 61 Year
  Sex: Male
  Weight: 59.2 kg

DRUGS (42)
  1. CETOMACROGOL [Concomitant]
     Indication: PRODUCT USED FOR UNKNOWN INDICATION
     Route: 003
     Dates: start: 20141105
  2. PREDNISOLONE. [Concomitant]
     Active Substance: PREDNISOLONE
     Route: 048
  3. HYDROCORTISONE. [Concomitant]
     Active Substance: HYDROCORTISONE
     Indication: PRODUCT USED FOR UNKNOWN INDICATION
     Route: 042
     Dates: start: 20141104, end: 20141104
  4. PARACETAMOL [Concomitant]
     Active Substance: ACETAMINOPHEN
     Indication: PRODUCT USED FOR UNKNOWN INDICATION
     Route: 048
     Dates: start: 20141001, end: 20141105
  5. FUSIDIC ACID EYE DROPS 10MG/G TUBE 5G [Concomitant]
     Indication: PRODUCT USED FOR UNKNOWN INDICATION
     Dosage: ACCORDING TO PRESCRIPTION
     Route: 047
     Dates: start: 20141001, end: 20141105
  6. KIOVIG [Suspect]
     Active Substance: HUMAN IMMUNOGLOBULIN G
     Route: 042
     Dates: start: 20140527
  7. CALCI CHEW D3 500MG/400IE [Concomitant]
     Indication: PRODUCT USED FOR UNKNOWN INDICATION
     Route: 048
     Dates: start: 20141001
  8. FUROSEMIDE. [Concomitant]
     Active Substance: FUROSEMIDE
     Dosage: DISCONTINUED
     Route: 048
  9. PREDNISOLONE. [Concomitant]
     Active Substance: PREDNISOLONE
     Route: 048
  10. AZITHROMYCINE [Concomitant]
     Active Substance: AZITHROMYCIN DIHYDRATE
     Indication: PRODUCT USED FOR UNKNOWN INDICATION
     Route: 048
  11. VASELINE 20% IN CETOMACROGOL CREAM 100G [Concomitant]
     Indication: PRODUCT USED FOR UNKNOWN INDICATION
     Route: 003
     Dates: start: 20141101, end: 20141105
  12. KIOVIG [Suspect]
     Active Substance: HUMAN IMMUNOGLOBULIN G
     Indication: OFF LABEL USE
     Route: 042
     Dates: start: 20120308
  13. CALCI CHEW D3 500MG/400IE [Concomitant]
     Route: 048
  14. UREA CREAM 100 MG/G FAGRON [Concomitant]
     Indication: PRODUCT USED FOR UNKNOWN INDICATION
     Dosage: 1-2 TIMES DAILY ON DRY SPOTS
     Route: 003
     Dates: start: 20141001
  15. CEFTRIAXON [Concomitant]
     Active Substance: CEFTRIAXONE
     Indication: PRODUCT USED FOR UNKNOWN INDICATION
     Route: 042
     Dates: start: 20141104, end: 20141105
  16. KIOVIG [Suspect]
     Active Substance: HUMAN IMMUNOGLOBULIN G
     Indication: SECONDARY IMMUNODEFICIENCY
     Route: 042
     Dates: start: 20140501
  17. KIOVIG [Suspect]
     Active Substance: HUMAN IMMUNOGLOBULIN G
     Route: 042
     Dates: start: 20140918
  18. GLIVEC [Suspect]
     Active Substance: IMATINIB MESYLATE
     Indication: CHRONIC GRAFT VERSUS HOST DISEASE
     Route: 065
     Dates: start: 201104, end: 201209
  19. PREDNISOLONE. [Concomitant]
     Active Substance: PREDNISOLONE
     Route: 048
  20. PREDNISOLONE. [Concomitant]
     Active Substance: PREDNISOLONE
     Route: 048
  21. PREDNISOLONE. [Concomitant]
     Active Substance: PREDNISOLONE
     Route: 048
  22. PREDNISOLONE. [Concomitant]
     Active Substance: PREDNISOLONE
     Route: 048
     Dates: start: 20141001, end: 20141104
  23. PREDNISOLONE. [Concomitant]
     Active Substance: PREDNISOLONE
     Route: 048
     Dates: start: 20141105, end: 20141111
  24. KIOVIG [Suspect]
     Active Substance: HUMAN IMMUNOGLOBULIN G
     Indication: MYELOFIBROSIS
     Route: 042
     Dates: start: 201003
  25. KIOVIG [Suspect]
     Active Substance: HUMAN IMMUNOGLOBULIN G
     Route: 042
     Dates: start: 20140820
  26. PREDNISOLONE. [Concomitant]
     Active Substance: PREDNISOLONE
     Route: 048
  27. PREDNISOLONE. [Concomitant]
     Active Substance: PREDNISOLONE
     Route: 048
  28. VALACYCLOVIR [Concomitant]
     Active Substance: VALACYCLOVIR HYDROCHLORIDE
     Indication: PRODUCT USED FOR UNKNOWN INDICATION
     Route: 048
  29. SALBUTAMOL AEROSOL 100UG/DO 200DO INHALATOR [Concomitant]
     Indication: PRODUCT USED FOR UNKNOWN INDICATION
     Dosage: 1-4 TIMES PER DAY
     Route: 065
  30. TIOTROPIUM VERNEVELVLST 2.5UG/DO PATR 60DO INH [Concomitant]
     Indication: PRODUCT USED FOR UNKNOWN INDICATION
     Route: 065
  31. PREDNISOLONE. [Concomitant]
     Active Substance: PREDNISOLONE
     Route: 048
  32. PREDNISOLONE. [Concomitant]
     Active Substance: PREDNISOLONE
     Route: 048
  33. CETOMACROGOL [Concomitant]
     Dosage: DISCONTINUED
     Route: 003
  34. MAGNESIUM HYDROXIDE. [Concomitant]
     Active Substance: MAGNESIUM HYDROXIDE
     Indication: PRODUCT USED FOR UNKNOWN INDICATION
     Route: 048
  35. OMEPRAZOLE MSR [Concomitant]
     Indication: PRODUCT USED FOR UNKNOWN INDICATION
     Route: 048
  36. PREDNISOLONE. [Concomitant]
     Active Substance: PREDNISOLONE
     Route: 048
  37. COTRIMOXAZOLE CF [Concomitant]
     Indication: PRODUCT USED FOR UNKNOWN INDICATION
     Route: 048
  38. BECLOMETASONE/FORMOTEROL AEROSOL 100/6UG/DO 120DO I [Concomitant]
     Indication: PRODUCT USED FOR UNKNOWN INDICATION
     Route: 065
  39. KIOVIG [Suspect]
     Active Substance: HUMAN IMMUNOGLOBULIN G
     Route: 042
     Dates: start: 20141105, end: 20141203
  40. FUROSEMIDE. [Concomitant]
     Active Substance: FUROSEMIDE
     Indication: PRODUCT USED FOR UNKNOWN INDICATION
     Route: 048
     Dates: start: 20141001
  41. BETAMETHASONE 1MG/G [Concomitant]
     Indication: PRODUCT USED FOR UNKNOWN INDICATION
     Route: 003
  42. PREDNISOLONE. [Concomitant]
     Active Substance: PREDNISOLONE
     Indication: PRODUCT USED FOR UNKNOWN INDICATION
     Route: 048

REACTIONS (8)
  - Pleural effusion [Recovering/Resolving]
  - Respiratory tract infection [Unknown]
  - Scleroderma [Unknown]
  - Dyspnoea [Recovering/Resolving]
  - Hypercapnia [Unknown]
  - Nausea [Unknown]
  - Bronchiectasis [Unknown]
  - Squamous cell carcinoma [Unknown]

NARRATIVE: CASE EVENT DATE: 201007
